FAERS Safety Report 5384813-8 (Version None)
Quarter: 2007Q3

REPORT INFORMATION
  Report Type: 
  Country: None (occurrence: None)
  Receive Date: 20070711
  Receipt Date: 20070705
  Transmission Date: 20080115
  Serious: Yes (Other)
  Sender: FDA-Public Use
  Company Number: JP-MERCK-0707USA01106

PATIENT
  Age: 66 Year
  Sex: Female

DRUGS (3)
  1. FOSAMAX [Suspect]
     Indication: OSTEOPOROSIS
     Route: 048
     Dates: start: 20070507, end: 20070624
  2. CIMETIDINE [Concomitant]
     Route: 048
     Dates: start: 20070507
  3. GEFARNATE [Concomitant]
     Route: 048
     Dates: start: 20070507

REACTIONS (1)
  - IRON DEFICIENCY ANAEMIA [None]
